FAERS Safety Report 5263016-1 (Version None)
Quarter: 2007Q1

REPORT INFORMATION
  Report Type: 
  Country: None (occurrence: None)
  Receive Date: 20070308
  Receipt Date: 20070301
  Transmission Date: 20070707
  Serious: Yes (Other)
  Sender: FDA-Public Use
  Company Number: URSO-2006-053

PATIENT
  Age: 45 Year
  Sex: Male

DRUGS (6)
  1. URSO 250 [Suspect]
     Indication: HEPATIC STEATOSIS
     Dosage: 300MG QD PO
     Route: 048
     Dates: start: 20061006, end: 20061124
  2. ALLOPURINOL [Suspect]
     Indication: HYPERURICAEMIA
     Dosage: 200 MG PO
     Route: 048
     Dates: start: 20061006, end: 20061124
  3. EPL (POLYENPHOSPHATIDYL CHOLINE) [Suspect]
     Indication: HYPERLIPIDAEMIA
     Dosage: 750 MG PO
     Route: 048
     Dates: start: 20061006, end: 20061124
  4. LEVOFLOXACIN [Suspect]
     Indication: NASOPHARYNGITIS
     Dosage: 400 MG PO
     Route: 048
     Dates: start: 20061120, end: 20061120
  5. MUCODYNE (CARBOCISTEINE) [Suspect]
     Indication: NASOPHARYNGITIS
     Dosage: 1.5 G PO
     Route: 048
     Dates: start: 20061123, end: 20061123
  6. HUSTAZOL (CLOPERASTINE FENDIZOATE) [Concomitant]

REACTIONS (3)
  - DRUG ERUPTION [None]
  - HEPATIC FUNCTION ABNORMAL [None]
  - NASOPHARYNGITIS [None]
